FAERS Safety Report 14813408 (Version 1)
Quarter: 2018Q2

REPORT INFORMATION
  Report Type: Spontaneous
  Country: US (occurrence: US)
  Receive Date: 20180426
  Receipt Date: 20180426
  Transmission Date: 20180711
  Serious: No
  Sender: FDA-Public Use
  Company Number: US-TEVA-2018-US-865295

PATIENT

DRUGS (1)
  1. ALPRAZOLAM ODT [Suspect]
     Active Substance: ALPRAZOLAM

REACTIONS (9)
  - Sleep disorder [Unknown]
  - Memory impairment [Unknown]
  - Stress [Unknown]
  - Irritability [Unknown]
  - Decreased interest [Unknown]
  - Weight decreased [Unknown]
  - Feeling abnormal [Unknown]
  - Abdominal discomfort [Unknown]
  - Gastrointestinal disorder [Unknown]
